FAERS Safety Report 9426371 (Version 1)
Quarter: 2013Q3

REPORT INFORMATION
  Report Type: Spontaneous
  Country: US (occurrence: None)
  Receive Date: 20130729
  Receipt Date: 20130729
  Transmission Date: 20140515
  Serious: No
  Sender: FDA-Public Use
  Company Number: None

PATIENT
  Age: 51 Year
  Sex: Male

DRUGS (1)
  1. AUGMENTIN [Suspect]
     Dosage: 7 DAYS.
     Dates: start: 20120105, end: 20120111

REACTIONS (8)
  - Drug-induced liver injury [None]
  - Diarrhoea [None]
  - Chromaturia [None]
  - Influenza like illness [None]
  - Decreased appetite [None]
  - Discomfort [None]
  - Mixed liver injury [None]
  - Hepatitis [None]
